FAERS Safety Report 6032269-4 (Version None)
Quarter: 2008Q4

REPORT INFORMATION
  Report Type: 
  Country: None (occurrence: None)
  Receive Date: 20081229
  Receipt Date: 20081208
  Transmission Date: 20090506
  Serious: Yes (Death)
  Sender: FDA-Public Use
  Company Number: OMX-2008-00043

PATIENT
  Age: 22 Year
  Sex: Female
  Weight: 63.5036 kg

DRUGS (1)
  1. EVICEL [Suspect]
     Indication: HAEMOSTASIS
     Dosage: ONCE

REACTIONS (2)
  - CARDIAC ARREST [None]
  - HAEMODYNAMIC INSTABILITY [None]
